FAERS Safety Report 21558441 (Version 1)
Quarter: 2022Q4

REPORT INFORMATION
  Report Type: Spontaneous
  Country: HR (occurrence: HR)
  Receive Date: 20221107
  Receipt Date: 20221107
  Transmission Date: 20230112
  Serious: Yes (Other)
  Sender: FDA-Public Use
  Company Number: None

PATIENT
  Age: 81 Year
  Sex: Male
  Weight: 90 kg

DRUGS (1)
  1. AMLODIPINE BESYLATE\VALSARTAN [Suspect]
     Active Substance: AMLODIPINE BESYLATE\VALSARTAN
     Indication: Systolic hypertension
     Dosage: 1 DOSAGE FORM, QD (1 DF= 10 MG AMLODIPINE BESILATE + 160 MG VALSARTAN, IN THE MORNING)
     Route: 048
     Dates: start: 20220925, end: 20221022

REACTIONS (3)
  - Joint swelling [Recovering/Resolving]
  - Cough [Recovering/Resolving]
  - Weight increased [Not Recovered/Not Resolved]

NARRATIVE: CASE EVENT DATE: 20221001
